FAERS Safety Report 7668812-9 (Version None)
Quarter: 2011Q3

REPORT INFORMATION
  Report Type: 
  Country: None (occurrence: None)
  Receive Date: 20110803
  Receipt Date: 20110630
  Transmission Date: 20111222
  Serious: Yes (Congenital Anomaly, Other)
  Sender: FDA-Public Use
  Company Number: DE-ACCORD-010108

PATIENT

DRUGS (1)
  1. MYCOPHENOLATE MOFETIL [Suspect]
     Dosage: TRANSPLACENTAL
     Route: 064

REACTIONS (6)
  - GASTROINTESTINAL MALFORMATION [None]
  - CONGENITAL OSTEODYSTROPHY [None]
  - CONGENITAL CARDIOVASCULAR ANOMALY [None]
  - MATERNAL DRUGS AFFECTING FOETUS [None]
  - CONGENITAL GENITOURINARY ABNORMALITY [None]
  - CLEFT LIP AND PALATE [None]
